FAERS Safety Report 4609548-8 (Version None)
Quarter: 2005Q1

REPORT INFORMATION
  Report Type: 
  Country: None (occurrence: None)
  Receive Date: 20050314
  Receipt Date: 20050314
  Transmission Date: 20050727
  Serious: Yes (Life-Threatening)
  Sender: FDA-Public Use
  Company Number: None

PATIENT
  Sex: Female
  Weight: 85.7298 kg

DRUGS (1)
  1. ICODEXTRIN     BAXTER [Suspect]
     Indication: PERITONEAL DIALYSIS
     Dosage: HEMODIALYS
     Route: 010
     Dates: start: 20040101, end: 20050208

REACTIONS (2)
  - BLOOD GLUCOSE FALSE POSITIVE [None]
  - DEVICE FAILURE [None]
